FAERS Safety Report 8574956 (Version 2)
Quarter: 2014Q3

REPORT INFORMATION
  Report Type: Spontaneous
  Country: PT (occurrence: PT)
  Receive Date: 20120523
  Receipt Date: 20140710
  Transmission Date: 20150326
  Serious: Yes (Other)
  Sender: FDA-Public Use
  Company Number: PT-RANBAXY-2012R1-56387

PATIENT
  Age: 14 Year
  Sex: Male

DRUGS (1)
  1. ISOTRETINOIN [Suspect]
     Active Substance: ISOTRETINOIN
     Indication: PITYRIASIS RUBRA PILARIS
     Dosage: UNK
     Route: 065

REACTIONS (1)
  - Pemphigoid [Recovered/Resolved]
